FAERS Safety Report 25074927 (Version 1)
Quarter: 2025Q1

REPORT INFORMATION
  Report Type: Spontaneous
  Country: GB (occurrence: GB)
  Receive Date: 20250313
  Receipt Date: 20250313
  Transmission Date: 20250409
  Serious: Yes (Hospitalization)
  Sender: MYLAN
  Company Number: GB-MYLANLABS-2025M1008319

PATIENT
  Sex: Male

DRUGS (2)
  1. CLOZARIL [Suspect]
     Active Substance: CLOZAPINE
     Indication: Delusional disorder, unspecified type
  2. CLOZARIL [Suspect]
     Active Substance: CLOZAPINE
     Indication: Schizophrenia

REACTIONS (6)
  - Hospitalisation [Unknown]
  - Differential white blood cell count abnormal [Unknown]
  - Eosinophilia [Unknown]
  - Anxiety [Unknown]
  - Oxygen saturation increased [Unknown]
  - Off label use [Unknown]

NARRATIVE: CASE EVENT DATE: 20250130
